FAERS Safety Report 7958199-6 (Version None)
Quarter: 2011Q4

REPORT INFORMATION
  Report Type: 
  Country: None (occurrence: None)
  Receive Date: 20111205
  Receipt Date: 20111129
  Transmission Date: 20120403
  Serious: Yes (Other)
  Sender: FDA-Public Use
  Company Number: BR-PFIZER INC-2011253578

PATIENT
  Age: 69 Year
  Sex: Female
  Weight: 58 kg

DRUGS (11)
  1. VARENICLINE TARTRATE [Suspect]
     Indication: SMOKING CESSATION THERAPY
     Dosage: 0.5 MG, 2X/DAY (IN THE MORNING AND IN THE AFTERNOON)
     Route: 048
     Dates: start: 20111011, end: 20111014
  2. VARENICLINE TARTRATE [Suspect]
     Dosage: 1 MG, 2X/DAY (IN THE MORNING AND ONE AT NIGHT)
     Route: 048
     Dates: start: 20111015, end: 20111020
  3. ASPIRIN [Concomitant]
     Indication: THROMBOCYTOSIS
     Dosage: (STRENGTH 325) ONE TABLET, ONCE DAILY
     Dates: start: 20101001
  4. RABEPRAZOLE SODIUM [Concomitant]
     Dosage: UNK
     Dates: start: 20110101
  5. VARENICLINE TARTRATE [Suspect]
     Indication: TOBACCO USER
     Dosage: 0.5 MG, 1X/DAY
     Route: 048
     Dates: start: 20111008, end: 20111010
  6. SYNTHROID [Concomitant]
     Indication: HORMONE THERAPY
     Dosage: (STRENGTH 122) ONE TABLET, ONCE DAILY
     Dates: start: 20050401
  7. LEXOTAN [Concomitant]
     Indication: ANXIETY
     Dosage: 3 MG, 1X/DAY (AT NIGHT)
  8. PANKREOFLAT [Concomitant]
     Indication: DIARRHOEA
     Dosage: AT THREE TABLETS DURING THE THREE MAIN MEALS
     Dates: start: 20110101, end: 20110101
  9. RABEPRAZOLE SODIUM [Concomitant]
     Indication: REFLUX GASTRITIS
     Dosage: ONE TABLET, ONCE DAILY
     Dates: start: 20110101, end: 20110101
  10. QUESTRAN [Concomitant]
     Dosage: AT ONE SACHET AFTER THE THREE MAIN MEALS
     Dates: start: 20110101, end: 20110101
  11. RABEPRAZOLE SODIUM [Concomitant]
     Indication: DIARRHOEA
     Dosage: AT TWO TABLETS WHEN FASTING AND  TWO TABLETS 30 MINUTES BEFORE DINNER
     Dates: start: 20110101, end: 20110101

REACTIONS (7)
  - DEPRESSION [None]
  - NAUSEA [None]
  - CONSTIPATION [None]
  - SOMNOLENCE [None]
  - AFFECT LABILITY [None]
  - EATING DISORDER [None]
  - CRYING [None]
